FAERS Safety Report 11322667 (Version 2)
Quarter: 2015Q3

REPORT INFORMATION
  Report Type: Spontaneous
  Country: PL (occurrence: PL)
  Receive Date: 20150730
  Receipt Date: 20150818
  Transmission Date: 20151125
  Serious: Yes (Hospitalization)
  Sender: FDA-Public Use
  Company Number: PL-ACCORD-032666

PATIENT
  Age: 3 Year
  Sex: Male

DRUGS (3)
  1. MYCOPHENOLIC ACID. [Suspect]
     Active Substance: MYCOPHENOLIC ACID
     Indication: IMMUNOSUPPRESSION
     Dosage: 2 ? 250 MG
  2. PROGRAF [Suspect]
     Active Substance: TACROLIMUS\TACROLIMUS ANHYDROUS
     Indication: IMMUNOSUPPRESSION
     Dosage: INITIAL DOSE: 2 ? 2 MG, CURRENT: 2 ? 1 MG
  3. PREDNISONE. [Concomitant]
     Active Substance: PREDNISONE
     Indication: IMMUNOSUPPRESSION
     Dosage: INITIAL DOSE: 1 ? 10 MG, CURRENT:?1 ? 1 MG

REACTIONS (20)
  - Hypochromic anaemia [Unknown]
  - Hypocalcaemia [Unknown]
  - Amylase increased [Unknown]
  - Epstein-Barr virus infection [Unknown]
  - Morganella infection [Unknown]
  - Erythema [Recovering/Resolving]
  - Dermatitis atopic [Recovering/Resolving]
  - Pneumocystis jirovecii infection [Unknown]
  - Body mass index decreased [Unknown]
  - Diarrhoea [Unknown]
  - Herpes virus infection [Recovering/Resolving]
  - Staphylococcal infection [Unknown]
  - Candida infection [Unknown]
  - Streptococcal infection [Unknown]
  - Klebsiella infection [Unknown]
  - Dermatitis [Not Recovered/Not Resolved]
  - Hypomagnesaemia [Unknown]
  - Enterobacter infection [Unknown]
  - Hypergammaglobulinaemia [Unknown]
  - Hyponatraemia [Unknown]
